FAERS Safety Report 13446981 (Version 1)
Quarter: 2017Q2

REPORT INFORMATION
  Report Type: Spontaneous
  Country: US (occurrence: US)
  Receive Date: 20170415
  Receipt Date: 20170415
  Transmission Date: 20170830
  Serious: Yes (Hospitalization)
  Sender: FDA-Public Use
  Company Number: None

PATIENT
  Age: 19 Month
  Sex: Female
  Weight: 105 kg

DRUGS (1)
  1. INVOKANA [Suspect]
     Active Substance: CANAGLIFLOZIN
     Indication: DIABETES MELLITUS
     Route: 048

REACTIONS (6)
  - Diabetic ketoacidosis [None]
  - Polydipsia [None]
  - Polyuria [None]
  - Vomiting [None]
  - Abdominal pain [None]
  - Back pain [None]

NARRATIVE: CASE EVENT DATE: 20170208
